FAERS Safety Report 14175917 (Version 1)
Quarter: 2017Q4

REPORT INFORMATION
  Report Type: Spontaneous
  Country: US (occurrence: None)
  Receive Date: 20171109
  Receipt Date: 20171109
  Transmission Date: 20180321
  Serious: Yes (Hospitalization)
  Sender: FDA-Public Use
  Company Number: None

PATIENT
  Age: 66 Year
  Sex: Female

DRUGS (20)
  1. FORTEO [Suspect]
     Active Substance: TERIPARATIDE
     Indication: OSTEOPOROSIS
     Route: 058
     Dates: start: 20170927
  2. ABILIFY [Concomitant]
     Active Substance: ARIPIPRAZOLE
  3. GABAPENTIN. [Concomitant]
     Active Substance: GABAPENTIN
  4. VITAMIN B6 [Concomitant]
     Active Substance: PYRIDOXINE HYDROCHLORIDE
  5. METOPRL/HCTZ [Concomitant]
  6. CYMBALTA [Concomitant]
     Active Substance: DULOXETINE HYDROCHLORIDE
  7. KEPPRA [Concomitant]
     Active Substance: LEVETIRACETAM
  8. SIMVASTATIN. [Concomitant]
     Active Substance: SIMVASTATIN
  9. SYNTHROID [Concomitant]
     Active Substance: LEVOTHYROXINE SODIUM
  10. VITAMIN D3 [Concomitant]
     Active Substance: CHOLECALCIFEROL
  11. ZOLPIDEM [Concomitant]
     Active Substance: ZOLPIDEM\ZOLPIDEM TARTRATE
  12. CLONAZEPAM. [Concomitant]
     Active Substance: CLONAZEPAM
  13. VITAMIN B12 [Concomitant]
     Active Substance: CYANOCOBALAMIN
  14. BUPROPION. [Concomitant]
     Active Substance: BUPROPION
  15. CALCITRIOL. [Concomitant]
     Active Substance: CALCITRIOL
  16. CARB/LEVO [Concomitant]
     Active Substance: CARBIDOPA\LEVODOPA
  17. LEVOTHYROXIN [Concomitant]
     Active Substance: LEVOTHYROXINE
  18. OMEPRAZOLE. [Concomitant]
     Active Substance: OMEPRAZOLE
  19. ASPIRIN. [Concomitant]
     Active Substance: ASPIRIN
  20. FOLIC ACID. [Concomitant]
     Active Substance: FOLIC ACID

REACTIONS (4)
  - Frustration tolerance decreased [None]
  - Loss of consciousness [None]
  - Fatigue [None]
  - Amnesia [None]

NARRATIVE: CASE EVENT DATE: 201710
